FAERS Safety Report 23777610 (Version 1)
Quarter: 2024Q2

REPORT INFORMATION
  Report Type: Spontaneous
  Country: US (occurrence: None)
  Receive Date: 20240423
  Receipt Date: 20240423
  Transmission Date: 20240716
  Serious: No
  Sender: FDA-Public Use
  Company Number: None

PATIENT
  Age: 45 Year
  Sex: Male
  Weight: 99 kg

DRUGS (1)
  1. FINASTERIDE\MINOXIDIL [Suspect]
     Active Substance: FINASTERIDE\MINOXIDIL
     Indication: Alopecia
     Dosage: TRANSDERMAL
     Route: 062
     Dates: start: 20230915, end: 20231115

REACTIONS (3)
  - Aphasia [None]
  - Personality change [None]
  - Apathy [None]

NARRATIVE: CASE EVENT DATE: 20231115
